FAERS Safety Report 18103305 (Version 2)
Quarter: 2020Q3

REPORT INFORMATION
  Report Type: Spontaneous
  Country: US (occurrence: US)
  Receive Date: 20200803
  Receipt Date: 20200910
  Transmission Date: 20201103
  Serious: No
  Sender: FDA-Public Use
  Company Number: US-PFIZER INC-2020131404

PATIENT
  Age: 63 Year
  Sex: Male

DRUGS (2)
  1. DILANTIN [Suspect]
     Active Substance: PHENYTOIN
     Dosage: 300 MG, ALTERNATE DAY (3 QD (ONCE A DAY) ALTERNATING WITH 4 QD (ONCE A DAY))
  2. DILANTIN [Suspect]
     Active Substance: PHENYTOIN
     Dosage: 400 MG, ALTERNATE DAY (3 QD (ONCE A DAY) ALTERNATING WITH 4 QD (ONCE A DAY))

REACTIONS (2)
  - Malaise [Unknown]
  - Nervousness [Unknown]
